FAERS Safety Report 8386292-5 (Version None)
Quarter: 2012Q2

REPORT INFORMATION
  Report Type: 
  Country: None (occurrence: None)
  Receive Date: 20120525
  Receipt Date: 20120517
  Transmission Date: 20120825
  Serious: Yes (Hospitalization)
  Sender: FDA-Public Use
  Company Number: TR-SANOFI-AVENTIS-2012SA031512

PATIENT
  Age: 72 Year
  Sex: Female
  Weight: 40 kg

DRUGS (2)
  1. ARAVA [Suspect]
     Indication: RHEUMATOID ARTHRITIS
     Dosage: DRUG TAKEN FROM: ARAVA TREATMENT STARTED 3-4 YRS AGO THEREFORE CAPTURED AS UNKNOWN.
     Route: 048
  2. ARAVA [Suspect]
     Dosage: DOSE: PATIENT SOMETIMES TOOK THE DRUG TWO TIMES IN A DAY.
     Route: 048
     Dates: end: 20120101

REACTIONS (9)
  - DEPRESSED LEVEL OF CONSCIOUSNESS [None]
  - PYREXIA [None]
  - PHARYNGEAL ULCERATION [None]
  - NEUTROPENIA [None]
  - THROMBOCYTOPENIA [None]
  - LEUKOPENIA [None]
  - INFECTION [None]
  - INCORRECT DOSE ADMINISTERED [None]
  - TOXICITY TO VARIOUS AGENTS [None]
